FAERS Safety Report 25860664 (Version 1)
Quarter: 2025Q3

REPORT INFORMATION
  Report Type: Spontaneous
  Country: US (occurrence: None)
  Receive Date: 20250926
  Receipt Date: 20250926
  Transmission Date: 20251021
  Serious: No
  Sender: FDA-CTU
  Company Number: None

PATIENT
  Sex: Male

DRUGS (1)
  1. XGEVA [Suspect]
     Active Substance: DENOSUMAB
     Indication: Metastases to bone
     Dosage: 1.7 MG ONCE A MONTH SUBCUTANEOUS?
     Route: 058
     Dates: start: 20240604

REACTIONS (2)
  - Fatigue [None]
  - Disorientation [None]
